FAERS Safety Report 9620313 (Version 1)
Quarter: 2013Q4

REPORT INFORMATION
  Report Type: Spontaneous
  Country: US (occurrence: US)
  Receive Date: 20131014
  Receipt Date: 20131014
  Transmission Date: 20140711
  Serious: No
  Sender: FDA-Public Use
  Company Number: US-ALLERGAN-1301242US

PATIENT
  Age: 24 Year
  Sex: Female

DRUGS (1)
  1. ALPHAGAN P [Suspect]
     Indication: INTRAOCULAR PRESSURE INCREASED
     Dosage: 2 GTT, BID
     Route: 047

REACTIONS (3)
  - Dry eye [Not Recovered/Not Resolved]
  - Dry mouth [Unknown]
  - Ocular hyperaemia [Not Recovered/Not Resolved]
